FAERS Safety Report 6722839-X (Version None)
Quarter: 2010Q2

REPORT INFORMATION
  Report Type: 
  Country: None (occurrence: None)
  Receive Date: 20100512
  Receipt Date: 20100512
  Transmission Date: 20101027
  Serious: No
  Sender: FDA-Public Use
  Company Number: None

PATIENT
  Age: 69 Year
  Sex: Male
  Weight: 95.2554 kg

DRUGS (1)
  1. AVELOX [Suspect]
     Indication: SINUSITIS
     Dosage: 400 MG DAILY PO
     Route: 048
     Dates: start: 20100506, end: 20100506

REACTIONS (7)
  - ANXIETY [None]
  - ARTHRALGIA [None]
  - DISORIENTATION [None]
  - DIZZINESS [None]
  - DRY MOUTH [None]
  - PAIN IN EXTREMITY [None]
  - SOMNOLENCE [None]
